FAERS Safety Report 20657347 (Version 2)
Quarter: 2022Q3

REPORT INFORMATION
  Report Type: Spontaneous
  Country: US (occurrence: None)
  Receive Date: 20220331
  Receipt Date: 20220916
  Transmission Date: 20221026
  Serious: Yes (Other)
  Sender: FDA-Public Use
  Company Number: 2022A125993

PATIENT
  Age: 2229 Day
  Sex: Male
  Weight: 35.4 kg

DRUGS (41)
  1. PRILOSEC OTC [Suspect]
     Active Substance: OMEPRAZOLE MAGNESIUM
     Indication: Gastrooesophageal reflux disease
     Route: 048
     Dates: start: 2011, end: 2013
  2. PRILOSEC OTC [Suspect]
     Active Substance: OMEPRAZOLE MAGNESIUM
     Indication: Gastrooesophageal reflux disease
     Route: 048
     Dates: start: 2011, end: 2013
  3. PRILOSEC OTC [Suspect]
     Active Substance: OMEPRAZOLE MAGNESIUM
     Indication: Gastrooesophageal reflux disease
     Route: 048
     Dates: start: 20110101, end: 20131231
  4. PRILOSEC OTC [Suspect]
     Active Substance: OMEPRAZOLE MAGNESIUM
     Indication: Gastrooesophageal reflux disease
     Route: 048
     Dates: start: 20110101, end: 20131231
  5. PRILOSEC [Suspect]
     Active Substance: OMEPRAZOLE MAGNESIUM
     Indication: Gastrooesophageal reflux disease
     Route: 048
     Dates: end: 2014
  6. PRILOSEC [Suspect]
     Active Substance: OMEPRAZOLE MAGNESIUM
     Indication: Gastrooesophageal reflux disease
     Route: 048
     Dates: end: 2014
  7. NEXIUM [Suspect]
     Active Substance: ESOMEPRAZOLE MAGNESIUM
     Indication: Gastrooesophageal reflux disease
     Route: 048
     Dates: start: 2011, end: 2016
  8. NEXIUM [Suspect]
     Active Substance: ESOMEPRAZOLE MAGNESIUM
     Indication: Gastrooesophageal reflux disease
     Route: 048
     Dates: start: 2011, end: 2016
  9. NEXIUM [Suspect]
     Active Substance: ESOMEPRAZOLE MAGNESIUM
     Indication: Gastrooesophageal reflux disease
     Dosage: GENERIC
     Route: 065
     Dates: start: 2018, end: 2021
  10. NEXIUM [Suspect]
     Active Substance: ESOMEPRAZOLE MAGNESIUM
     Indication: Gastrooesophageal reflux disease
     Dosage: GENERIC
     Route: 065
     Dates: start: 2018, end: 2021
  11. AZITHROMYCIN [Concomitant]
     Active Substance: AZITHROMYCIN
  12. AMINOCAPROIC ACID/SULFAMETHOXAZOLE SODIUM/DIPOTASSIUM GLYCYRRHIZATE/CH [Concomitant]
  13. AMOXIL [Concomitant]
     Active Substance: AMOXICILLIN
  14. ERYTHROMYCIN [Concomitant]
     Active Substance: ERYTHROMYCIN
  15. NEOMYCIN [Concomitant]
     Active Substance: NEOMYCIN
  16. ENALAPRIL [Concomitant]
     Active Substance: ENALAPRIL
  17. ASPIRIN [Concomitant]
     Active Substance: ASPIRIN
  18. RANITIDINE [Concomitant]
     Active Substance: RANITIDINE
  19. TUMS [Concomitant]
     Active Substance: CALCIUM CARBONATE
  20. CYPROHEPTAD [Concomitant]
  21. LOPERAMIDE [Concomitant]
     Active Substance: LOPERAMIDE
  22. VITAMIN D2 [Concomitant]
     Active Substance: ERGOCALCIFEROL
  23. HYDROPHOR [Concomitant]
     Active Substance: PETROLATUM
  24. IMODIUM [Concomitant]
     Active Substance: LOPERAMIDE HYDROCHLORIDE
  25. AMLODIPINE BESYLATE [Concomitant]
     Active Substance: AMLODIPINE BESYLATE
  26. CARAFATE [Concomitant]
     Active Substance: SUCRALFATE
  27. VITAMINS [Concomitant]
     Active Substance: VITAMINS
  28. HYOSYNE [Concomitant]
     Active Substance: HYOSCYAMINE SULFATE
  29. CLINDAMYCIN [Concomitant]
     Active Substance: CLINDAMYCIN
  30. ACETAMINOPHEN [Concomitant]
     Active Substance: ACETAMINOPHEN
  31. BENTYL [Concomitant]
     Active Substance: DICYCLOMINE HYDROCHLORIDE
  32. TOPROL XL [Concomitant]
     Active Substance: METOPROLOL SUCCINATE
  33. PERIACTIN [Concomitant]
     Active Substance: CYPROHEPTADINE HYDROCHLORIDE
  34. RELION [Concomitant]
  35. MUPIROCIN [Concomitant]
     Active Substance: MUPIROCIN
  36. ENOXAPARIN [Concomitant]
     Active Substance: ENOXAPARIN
  37. ONDANSETRON [Concomitant]
     Active Substance: ONDANSETRON
  38. PREVALITE [Concomitant]
     Active Substance: CHOLESTYRAMINE
  39. SULFAMETHOXAZOLE\TRIMETHOPRIM [Concomitant]
     Active Substance: SULFAMETHOXAZOLE\TRIMETHOPRIM
  40. METRONIDAZIDE [Concomitant]
  41. HEPARIN [Concomitant]
     Active Substance: HEPARIN SODIUM

REACTIONS (3)
  - Chronic kidney disease [Not Recovered/Not Resolved]
  - Acute kidney injury [Not Recovered/Not Resolved]
  - Renal failure [Unknown]

NARRATIVE: CASE EVENT DATE: 20120917
